FAERS Safety Report 10218218 (Version 1)
Quarter: 2014Q2

REPORT INFORMATION
  Report Type: Spontaneous
  Country: US (occurrence: US)
  Receive Date: 20140605
  Receipt Date: 20140605
  Transmission Date: 20141212
  Serious: No
  Sender: FDA-Public Use
  Company Number: US-ASTRAZENECA-2014SE36609

PATIENT
  Age: 79 Year
  Sex: Female
  Weight: 68.5 kg

DRUGS (4)
  1. ATENOLOL [Suspect]
     Route: 065
  2. LISINOPRIL [Suspect]
     Route: 048
  3. CRESTOR [Suspect]
     Route: 048
  4. CRESTOR [Suspect]
     Route: 048

REACTIONS (8)
  - Malaise [Recovering/Resolving]
  - Clostridium difficile infection [Unknown]
  - Body height decreased [Not Recovered/Not Resolved]
  - Feeling abnormal [Recovering/Resolving]
  - Fatigue [Recovering/Resolving]
  - Nausea [Recovering/Resolving]
  - Asthenia [Recovering/Resolving]
  - Intentional product misuse [Unknown]
